FAERS Safety Report 9410754 (Version 1)
Quarter: 2013Q3

REPORT INFORMATION
  Report Type: Report from Study
  Country: US (occurrence: US)
  Receive Date: 20130719
  Receipt Date: 20130719
  Transmission Date: 20140515
  Serious: Yes (Hospitalization)
  Sender: FDA-Public Use
  Company Number: US-ABBOTT-13P-163-1117425-00

PATIENT
  Age: 62 Year
  Sex: Female

DRUGS (36)
  1. HUMIRA [Suspect]
     Indication: CROHN^S DISEASE
     Dosage: DAY 1
     Dates: start: 20130412, end: 20130412
  2. HUMIRA [Suspect]
     Dosage: DAY 15
  3. HUMIRA [Suspect]
  4. FLEXERIL [Concomitant]
     Indication: MUSCLE SPASMS
     Dosage: 3 TIMES A DAY AS NEEDED
  5. ASACOL EC [Concomitant]
     Indication: ABDOMINAL PAIN UPPER
  6. RANEXA [Concomitant]
     Indication: ANGINA PECTORIS
  7. LYRICA [Concomitant]
     Indication: NEUROPATHY PERIPHERAL
     Dosage: 50 MG DAILY
  8. HYDROCODONE [Concomitant]
     Indication: PAIN
     Dosage: 1 - 10/325 MG EVERY 6 HOURS AS NEEDED
  9. LANTUS [Concomitant]
     Indication: DIABETES MELLITUS
     Dosage: AT BEDTIME
  10. NOVALOG [Concomitant]
     Indication: DIABETES MELLITUS
     Dosage: SLIDING SCALE
  11. HYDROCORTISONE AC [Concomitant]
     Indication: PRODUCT USED FOR UNKNOWN INDICATION
  12. COMBIVENT [Concomitant]
     Indication: CHRONIC OBSTRUCTIVE PULMONARY DISEASE
     Route: 055
  13. MICARDIS [Concomitant]
     Indication: CARDIAC DISORDER
  14. FISH OIL [Concomitant]
     Indication: CARDIAC DISORDER
     Dosage: 1000 MG DAILY
  15. LEXAPRO [Concomitant]
     Indication: NERVOUS SYSTEM DISORDER
     Dosage: 20 MG DAILY
  16. DIGOXIN [Concomitant]
     Indication: CARDIAC DISORDER
     Dosage: 250 MCG DAILY
  17. ISORDIL [Concomitant]
     Indication: HYPERTENSION
  18. HYDRALAZINE [Concomitant]
     Indication: HYPERTENSION
  19. SIMVASTATIN [Concomitant]
     Indication: CARDIAC DISORDER
     Dosage: AT BEDTIME
  20. POTASSIUM [Concomitant]
     Indication: BLOOD POTASSIUM DECREASED
     Dosage: 10 MEQ DAILY
  21. OXYCONTIN [Concomitant]
     Indication: PAIN
  22. METOPROLOL [Concomitant]
     Indication: CARDIAC DISORDER
  23. TEMAZEPAM [Concomitant]
     Indication: INSOMNIA
     Dosage: AT BEDTIME
  24. CLONIDINE [Concomitant]
     Indication: HYPERTENSION
  25. DEXILANT [Concomitant]
     Indication: GASTROOESOPHAGEAL REFLUX DISEASE
     Dosage: 60 MG DAILY
  26. ASPIRIN EC [Concomitant]
     Indication: CARDIAC DISORDER
     Dosage: 81 MG DAILY
  27. LASIX [Concomitant]
     Indication: FLUID RETENTION
  28. ZOFRAN [Concomitant]
     Indication: GASTRIC DISORDER
     Dosage: 1-2 TABLETS 2-3 TIMES PER DAY AS NEEDED
  29. PLAVIX [Concomitant]
     Indication: CARDIAC DISORDER
     Dosage: 75 MG DAILY
  30. MINOXIDIL [Concomitant]
     Indication: HYPERTENSION
     Dosage: 1/2-TABLET TWICE DAILY
  31. METFORMIN [Concomitant]
     Indication: DIABETES MELLITUS
  32. NITROGLYCERIN [Concomitant]
     Indication: CARDIAC DISORDER
  33. PRAVASTATIN [Concomitant]
     Indication: PRODUCT USED FOR UNKNOWN INDICATION
     Dosage: 20 MG DAILY
  34. SEROQUEL [Concomitant]
     Indication: PRODUCT USED FOR UNKNOWN INDICATION
     Dosage: AT BEDTIME
  35. DIAZEPAM [Concomitant]
     Indication: PRODUCT USED FOR UNKNOWN INDICATION
     Dosage: 3 TIMES DAILY AS NEEDED
  36. ADVAIR [Concomitant]
     Indication: PRODUCT USED FOR UNKNOWN INDICATION
     Route: 055

REACTIONS (7)
  - Eating disorder [Unknown]
  - Blood magnesium decreased [Unknown]
  - Blood potassium decreased [Unknown]
  - Blood test abnormal [Unknown]
  - Cardiac failure congestive [Unknown]
  - Myocardial infarction [Unknown]
  - Crohn^s disease [Unknown]
